APPROVED DRUG PRODUCT: NICOTINE POLACRILEX
Active Ingredient: NICOTINE POLACRILEX
Strength: EQ 2MG BASE
Dosage Form/Route: TROCHE/LOZENGE;ORAL
Application: A212983 | Product #001
Applicant: DR REDDYS LABORATORIES SA
Approved: Feb 21, 2020 | RLD: No | RS: No | Type: OTC